FAERS Safety Report 5046589-3 (Version None)
Quarter: 2006Q2

REPORT INFORMATION
  Report Type: 
  Country: None (occurrence: None)
  Receive Date: 20060630
  Receipt Date: 20060622
  Transmission Date: 20061013
  Serious: Yes (Hospitalization)
  Sender: FDA-Public Use
  Company Number: 226585

PATIENT
  Age: 17 Year
  Sex: Male

DRUGS (2)
  1. XOLAIR [Suspect]
     Indication: ASTHMA
     Dosage: 3 VIAL, 2/MONTH,
  2. STEROIDS (STEROID NOS) [Suspect]
     Dosage: 60 MG, 1/MONTH,

REACTIONS (1)
  - PILONIDAL CYST [None]
